FAERS Safety Report 4884734-0 (Version None)
Quarter: 2005Q4

REPORT INFORMATION
  Report Type: 
  Country: None (occurrence: None)
  Receive Date: 20051201
  Receipt Date: 20050907
  Transmission Date: 20060501
  Serious: No
  Sender: FDA-Public Use
  Company Number: 2005PV001743

PATIENT
  Age: 67 Year
  Sex: Male

DRUGS (10)
  1. BYETTA [Suspect]
     Indication: DIABETES MELLITUS NON-INSULIN-DEPENDENT
     Dosage: 5 MCG; BID; SC
     Route: 058
     Dates: start: 20050719, end: 20050902
  2. METFORMIN HCL [Concomitant]
  3. AMARYL [Concomitant]
  4. COZAAR [Concomitant]
  5. NORVASC [Concomitant]
  6. DETROL LA [Concomitant]
  7. ASPIRIN [Concomitant]
  8. ANTIVERT ^PFIZER^ [Concomitant]
  9. CIALIS ^GLAXOSMITHKLINE^ [Concomitant]
  10. FLOMAX [Concomitant]

REACTIONS (10)
  - ABDOMINAL DISCOMFORT [None]
  - BLOOD GLUCOSE INCREASED [None]
  - DEMENTIA [None]
  - DISTURBANCE IN ATTENTION [None]
  - MALAISE [None]
  - MEMORY IMPAIRMENT [None]
  - MUSCLE SPASMS [None]
  - NAUSEA [None]
  - PERSONALITY CHANGE [None]
  - SLUGGISHNESS [None]
